FAERS Safety Report 21758320 (Version 1)
Quarter: 2022Q4

REPORT INFORMATION
  Report Type: Spontaneous
  Country: US (occurrence: US)
  Receive Date: 20221221
  Receipt Date: 20221221
  Transmission Date: 20230113
  Serious: No
  Sender: FDA-Public Use
  Company Number: US-ABBVIE-4199045

PATIENT

DRUGS (2)
  1. RINVOQ [Suspect]
     Active Substance: UPADACITINIB
     Indication: Product used for unknown indication
     Route: 048
  2. PLAQUENIL [Concomitant]
     Active Substance: HYDROXYCHLOROQUINE SULFATE
     Indication: Product used for unknown indication

REACTIONS (15)
  - Condition aggravated [Unknown]
  - Gastrointestinal disorder [Recovering/Resolving]
  - Thirst [Unknown]
  - Ear pain [Recovering/Resolving]
  - Vertigo [Recovering/Resolving]
  - Fatigue [Recovering/Resolving]
  - Feeling abnormal [Unknown]
  - Mobility decreased [Recovering/Resolving]
  - Hypersensitivity [Unknown]
  - Sleep disorder [Recovering/Resolving]
  - Psoriatic arthropathy [Unknown]
  - Dry throat [Unknown]
  - Dry eye [Unknown]
  - Rheumatoid arthritis [Unknown]
  - Juvenile idiopathic arthritis [Unknown]
